FAERS Safety Report 23909463 (Version 1)
Quarter: 2024Q2

REPORT INFORMATION
  Report Type: Spontaneous
  Country: US (occurrence: US)
  Receive Date: 20240528
  Receipt Date: 20240528
  Transmission Date: 20240715
  Serious: Yes (Life-Threatening)
  Sender: FDA-Public Use
  Company Number: US-JNJFOC-20240566609

PATIENT
  Age: 27 Year
  Sex: Male

DRUGS (1)
  1. LOPERAMIDE HYDROCHLORIDE [Suspect]
     Active Substance: LOPERAMIDE HYDROCHLORIDE
     Indication: Product used for unknown indication
     Route: 048
     Dates: start: 202301

REACTIONS (10)
  - Acute kidney injury [Unknown]
  - Pancreatitis [Unknown]
  - Lactic acidosis [Unknown]
  - Metabolic acidosis [Unknown]
  - Respiratory alkalosis [Unknown]
  - Cardiac failure high output [Unknown]
  - Hypotension [Unknown]
  - Distributive shock [Unknown]
  - Multiple organ dysfunction syndrome [Unknown]
  - Overdose [Unknown]

NARRATIVE: CASE EVENT DATE: 20230101
